FAERS Safety Report 16155534 (Version 1)
Quarter: 2019Q2

REPORT INFORMATION
  Report Type: Spontaneous
  Country: US (occurrence: US)
  Receive Date: 20190404
  Receipt Date: 20190404
  Transmission Date: 20190711
  Serious: No
  Sender: FDA-Public Use
  Company Number: US-JNJFOC-20190324287

PATIENT
  Age: 27 Year
  Sex: Male

DRUGS (1)
  1. STELARA [Suspect]
     Active Substance: USTEKINUMAB
     Indication: CROHN^S DISEASE
     Dosage: AROUND 6 MONTHS AGO
     Route: 058
     Dates: start: 2018

REACTIONS (3)
  - Device deployment issue [Unknown]
  - Product dose omission [Unknown]
  - Procedural complication [Unknown]

NARRATIVE: CASE EVENT DATE: 20190317
